FAERS Safety Report 9444891 (Version 1)
Quarter: 2013Q3

REPORT INFORMATION
  Report Type: Spontaneous
  Country: US (occurrence: None)
  Receive Date: 20130805
  Receipt Date: 20130805
  Transmission Date: 20140515
  Serious: Yes (Other)
  Sender: FDA-Public Use
  Company Number: 2013-00119

PATIENT
  Age: 78 Year
  Sex: Male
  Weight: 79.38 kg

DRUGS (6)
  1. ZICAM [Suspect]
     Indication: NASAL CONGESTION
     Dosage: 1 PACKET ORALLY DAILY, 2 DAYS
     Route: 048
     Dates: start: 20130730, end: 20130731
  2. HYZAAR [Concomitant]
  3. ZOCOR [Concomitant]
  4. DILANTIN [Concomitant]
  5. PEPCID [Concomitant]
  6. TRANXENE [Concomitant]

REACTIONS (1)
  - Ageusia [None]
